FAERS Safety Report 25465763 (Version 2)
Quarter: 2025Q4

REPORT INFORMATION
  Report Type: Spontaneous
  Country: US (occurrence: US)
  Receive Date: 20250623
  Receipt Date: 20251119
  Transmission Date: 20260117
  Serious: No
  Sender: TOLMAR
  Company Number: US-Tolmar-TLM-2025-03841

PATIENT

DRUGS (3)
  1. ELIGARD [Suspect]
     Active Substance: LEUPROLIDE ACETATE
     Indication: Product used for unknown indication
     Route: 065
  2. ELIGARD [Suspect]
     Active Substance: LEUPROLIDE ACETATE
     Dosage: REPLACEMENT DOSE GIVEN
  3. DEVICE [Suspect]
     Active Substance: DEVICE
     Indication: Product used for unknown indication

REACTIONS (2)
  - Intercepted product preparation error [Unknown]
  - Wrong technique in product usage process [Unknown]
